FAERS Safety Report 20975189 (Version 1)
Quarter: 2022Q2

REPORT INFORMATION
  Report Type: Spontaneous
  Country: CZ (occurrence: CZ)
  Receive Date: 20220617
  Receipt Date: 20220617
  Transmission Date: 20220720
  Serious: Yes (Other)
  Sender: FDA-Public Use
  Company Number: CZ-002147023-NVSC2022CZ128920

PATIENT
  Age: 25 Year
  Sex: Male

DRUGS (1)
  1. OLANZAPINE [Suspect]
     Active Substance: OLANZAPINE
     Indication: Product used for unknown indication
     Dosage: UNK

REACTIONS (10)
  - Delusion [Recovering/Resolving]
  - Hallucination, tactile [Recovering/Resolving]
  - Hallucination, auditory [Recovering/Resolving]
  - Drug ineffective [Recovering/Resolving]
  - Abulia [Unknown]
  - Emotional disorder [Unknown]
  - Social avoidant behaviour [Unknown]
  - Metabolic syndrome [Unknown]
  - Dyslipidaemia [Unknown]
  - Weight increased [Unknown]
